FAERS Safety Report 7979213-8 (Version None)
Quarter: 2011Q4

REPORT INFORMATION
  Report Type: 
  Country: None (occurrence: None)
  Receive Date: 20111214
  Receipt Date: 20111206
  Transmission Date: 20120403
  Serious: Yes (Other)
  Sender: FDA-Public Use
  Company Number: US-BAYER-2011-103254

PATIENT
  Age: 35 Year
  Sex: Female

DRUGS (1)
  1. MIRENA [Suspect]
     Indication: CONTRACEPTION
     Dosage: 20 MCG/24HR, CONT
     Route: 015
     Dates: start: 20081209, end: 20111001

REACTIONS (7)
  - AMENORRHOEA [None]
  - UTERINE PERFORATION [None]
  - NAUSEA [None]
  - PAIN [None]
  - ABDOMINAL PAIN [None]
  - GASTROENTERITIS [None]
  - VOMITING [None]
